FAERS Safety Report 10581462 (Version 2)
Quarter: 2014Q4

REPORT INFORMATION
  Report Type: Spontaneous
  Country: US (occurrence: None)
  Receive Date: 20141110
  Receipt Date: 20141205
  Transmission Date: 20150529
  Serious: Yes (Other)
  Sender: FDA-Public Use
  Company Number: 2611044

PATIENT
  Age: 48 Year
  Sex: Female

DRUGS (2)
  1. LIDOCAINE HCL 1% + EPIN. 1:100,000 INJ, USP, MULTI-DOSE FLIPTOP VIALS (LIDOCAINE HYDROCHLORIDE) [Suspect]
     Active Substance: EPINEPHRINE\LIDOCAINE HYDROCHLORIDE
     Indication: ANAESTHESIA
     Dates: start: 20140929, end: 20140929
  2. SODIUM BICARBONATE. [Suspect]
     Active Substance: SODIUM BICARBONATE
     Indication: MEDICATION DILUTION
     Dosage: 73 ML  MILLILITRE(S) (UNKNOWN) UNKNOWN
     Dates: start: 20140929, end: 20140929

REACTIONS (7)
  - Medication error [None]
  - Burning sensation [None]
  - Erythema [None]
  - Incorrect dose administered [None]
  - Drug ineffective [None]
  - Wrong technique in drug usage process [None]
  - Induration [None]

NARRATIVE: CASE EVENT DATE: 20140929
